FAERS Safety Report 19590697 (Version 1)
Quarter: 2021Q3

REPORT INFORMATION
  Report Type: Spontaneous
  Country: US (occurrence: US)
  Receive Date: 20210721
  Receipt Date: 20210721
  Transmission Date: 20211014
  Serious: No
  Sender: FDA-Public Use
  Company Number: US-SA-2021SA233857

PATIENT
  Sex: Female

DRUGS (7)
  1. PROTONEX [Concomitant]
  2. ZYRTEC R [Concomitant]
     Active Substance: CETIRIZINE HYDROCHLORIDE
  3. AUBAGIO [Suspect]
     Active Substance: TERIFLUNOMIDE
     Indication: MULTIPLE SCLEROSIS
     Dosage: 14 MG, QD
     Route: 048
  4. SINGULAIR [Concomitant]
     Active Substance: MONTELUKAST SODIUM
  5. MYRBETRIQ [Concomitant]
     Active Substance: MIRABEGRON
  6. CELEXIA [Concomitant]
     Active Substance: CELECOXIB
  7. LAMOTRIGINE. [Concomitant]
     Active Substance: LAMOTRIGINE

REACTIONS (1)
  - Product dose omission issue [Unknown]
